FAERS Safety Report 10855979 (Version 1)
Quarter: 2015Q1

REPORT INFORMATION
  Report Type: Spontaneous
  Country: US (occurrence: None)
  Receive Date: 20150218
  Receipt Date: 20150218
  Transmission Date: 20150721
  Serious: Yes (Life-Threatening, Hospitalization, Other)
  Sender: FDA-Public Use
  Company Number: None

PATIENT
  Age: 7 Month
  Sex: Male

DRUGS (1)
  1. BRILINTA [Suspect]
     Active Substance: TICAGRELOR
     Indication: STENT PLACEMENT
     Dosage: 1 PILL
     Route: 048
     Dates: start: 20141125, end: 20150206

REACTIONS (8)
  - Fatigue [None]
  - Asthenia [None]
  - Constipation [None]
  - Visual impairment [None]
  - Dizziness [None]
  - Faeces discoloured [None]
  - Haemoglobin decreased [None]
  - Internal haemorrhage [None]

NARRATIVE: CASE EVENT DATE: 20150201
